FAERS Safety Report 9126983 (Version 1)
Quarter: 2013Q1

REPORT INFORMATION
  Report Type: Spontaneous
  Country: BR (occurrence: BR)
  Receive Date: 20130228
  Receipt Date: 20130228
  Transmission Date: 20140127
  Serious: Yes (Other)
  Sender: FDA-Public Use
  Company Number: PHHY2013BR005835

PATIENT
  Age: 83 None
  Sex: Female
  Weight: 110 kg

DRUGS (5)
  1. DIOCOMB SI [Suspect]
     Indication: BLOOD PRESSURE INADEQUATELY CONTROLLED
     Dosage: 2 DF (160 MG VALSARTAN/20MG SIMVASTATIN) DAILY
     Route: 048
  2. SELOZOK [Concomitant]
     Indication: CARDIAC DISORDER
     Dosage: 2 DF (50MG), A DAY
     Route: 048
  3. MAREVAN [Concomitant]
     Indication: BLOOD DISORDER
     Dosage: 0.5 DF (7.5MG), A DAY
     Route: 048
  4. MEMANTINE [Concomitant]
     Indication: SENILE DEMENTIA
     Dosage: 2 DF (10MG), A DAY
     Route: 048
  5. DIOVAN [Concomitant]
     Indication: BLOOD PRESSURE ABNORMAL
     Dosage: 1 DF, A DAY
     Route: 048
     Dates: start: 20130118

REACTIONS (11)
  - Cerebrovascular accident [Recovered/Resolved]
  - Balance disorder [Not Recovered/Not Resolved]
  - Thrombosis [Recovered/Resolved]
  - Fatigue [Not Recovered/Not Resolved]
  - Pulmonary embolism [Recovered/Resolved]
  - Dementia with Lewy bodies [Not Recovered/Not Resolved]
  - Depression [Not Recovered/Not Resolved]
  - Malaise [Unknown]
  - Heart rate increased [Unknown]
  - Blood pressure increased [Unknown]
  - Vomiting [Recovered/Resolved]
